FAERS Safety Report 8855065 (Version 1)
Quarter: 2012Q4

REPORT INFORMATION
  Report Type: 
  Country: JP (occurrence: JP)
  Receive Date: 20121023
  Receipt Date: 20121023
  Transmission Date: 20130627
  Serious: Yes (Other)
  Sender: FDA-Public Use
  Company Number: JP-009507513-1210JPN004855

PATIENT
  Age: 51 Year
  Sex: Female
  Weight: 63 kg

DRUGS (18)
  1. PEGINTRON [Suspect]
     Indication: HEPATITIS C
     Dosage: 1.5 Microgram per kilogram, qw
     Route: 058
     Dates: start: 20120611
  2. REBETOL [Suspect]
     Indication: HEPATITIS C
     Dosage: 800 mg, qd
     Route: 048
     Dates: start: 20120611, end: 20120621
  3. REBETOL [Suspect]
     Dosage: 200 mg, bid
     Route: 048
     Dates: start: 20120621, end: 20120625
  4. REBETOL [Suspect]
     Dosage: 200 mg, qd
     Route: 048
     Dates: start: 20120626
  5. REBETOL [Suspect]
     Dosage: 600 mg, qd
     Route: 048
     Dates: end: 20120813
  6. REBETOL [Suspect]
     Dosage: 400 mg qd
     Route: 048
     Dates: start: 20120813, end: 20120909
  7. REBETOL [Suspect]
     Dosage: 600 mg, qd
     Route: 048
     Dates: start: 20120910
  8. TELAVIC [Suspect]
     Indication: HEPATITIS C
     Dosage: 1500 mg, qd
     Route: 048
     Dates: start: 20120611, end: 20120723
  9. BLOPRESS [Concomitant]
     Indication: HYPERTENSION
     Dosage: 4 mg, qd, Formulation: POR
     Route: 048
  10. MAINTATE [Concomitant]
     Indication: HYPERTENSION
     Dosage: 2.5 mg, qd
     Route: 048
  11. TERPENONE [Concomitant]
     Indication: GASTRITIS
     Dosage: 2 DF, qd
     Route: 048
  12. JANUVIA [Concomitant]
     Indication: DIABETES MELLITUS
     Dosage: 1 DF
     Route: 048
  13. MILNACIPRAN HYDROCHLORIDE [Concomitant]
     Indication: DEPRESSIVE SYMPTOM
     Dosage: 4 DF, qd
     Route: 048
  14. PALGIN [Concomitant]
     Indication: DEPRESSIVE SYMPTOM
     Dosage: 1DF, qd
     Route: 048
  15. PALGIN [Concomitant]
     Indication: INSOMNIA
  16. ANAFRANIL [Concomitant]
     Indication: DEPRESSIVE SYMPTOM
     Dosage: 1 DF, qd
     Route: 048
  17. ANAFRANIL [Concomitant]
     Indication: INSOMNIA
  18. SALOBEL [Concomitant]
     Indication: HYPERURICAEMIA
     Dosage: 1DF, qd
     Route: 048
     Dates: start: 20120619

REACTIONS (2)
  - Drug eruption [Recovering/Resolving]
  - Dermatitis exfoliative [Recovering/Resolving]
